FAERS Safety Report 18026229 (Version 6)
Quarter: 2020Q3

REPORT INFORMATION
  Report Type: Report from Study
  Country: FR (occurrence: FR)
  Receive Date: 20200715
  Receipt Date: 20200828
  Transmission Date: 20201103
  Serious: Yes (Hospitalization, Other)
  Sender: FDA-Public Use
  Company Number: NVSC2020FR196769

PATIENT
  Age: 46 Year
  Sex: Female
  Weight: 54.5 kg

DRUGS (18)
  1. IRBESARTAN. [Concomitant]
     Active Substance: IRBESARTAN
     Indication: PRODUCT USED FOR UNKNOWN INDICATION
     Dosage: UNK
     Route: 065
     Dates: start: 20190802
  2. IMOVANE [Concomitant]
     Active Substance: ZOPICLONE
     Indication: PRODUCT USED FOR UNKNOWN INDICATION
     Dosage: UNK
     Route: 065
     Dates: start: 20190801
  3. ADOPORT [Suspect]
     Active Substance: TACROLIMUS
     Dosage: 10 MG, UNKNOWN
     Route: 048
     Dates: start: 20190803
  4. ADOPORT [Suspect]
     Active Substance: TACROLIMUS
     Dosage: 11 MG, UNKNOWN
     Route: 048
     Dates: start: 20191031, end: 20200113
  5. OPTIMIZETTE [Concomitant]
     Active Substance: DESOGESTREL
     Indication: PRODUCT USED FOR UNKNOWN INDICATION
     Dosage: UNK
     Route: 065
     Dates: start: 20190805
  6. PHOSPHONEUROS [Concomitant]
     Active Substance: CALCIUM PHOSPHATE, DIBASIC, ANHYDROUS\MAGNESIUM GLYCEROPHOSPHATE\PHOSPHORIC ACID\SODIUM PHOSPHATE, DIBASIC
     Indication: PRODUCT USED FOR UNKNOWN INDICATION
     Dosage: UNK
     Route: 065
     Dates: start: 20190805
  7. CELLCEPT [Concomitant]
     Active Substance: MYCOPHENOLATE MOFETIL\MYCOPHENOLATE MOFETIL HYDROCHLORIDE
     Indication: PRODUCT USED FOR UNKNOWN INDICATION
     Dosage: UNK
     Route: 065
     Dates: start: 20190731
  8. ADOPORT [Suspect]
     Active Substance: TACROLIMUS
     Dosage: 9 MG, UNKNOWN
     Route: 048
     Dates: start: 20190802, end: 20190803
  9. ADOPORT [Suspect]
     Active Substance: TACROLIMUS
     Dosage: 10 MG, UNKNOWN
     Route: 048
     Dates: start: 20190830, end: 20190905
  10. ADOPORT [Suspect]
     Active Substance: TACROLIMUS
     Dosage: 6 MG, UNKNOWN
     Route: 048
     Dates: start: 20200610
  11. BACTRIM [Concomitant]
     Active Substance: SULFAMETHOXAZOLE\TRIMETHOPRIM
     Indication: PRODUCT USED FOR UNKNOWN INDICATION
     Dosage: UNK
     Route: 065
     Dates: start: 20190803
  12. UVEDOSE [Concomitant]
     Active Substance: CHOLECALCIFEROL
     Indication: PRODUCT USED FOR UNKNOWN INDICATION
     Dosage: UNK
     Route: 065
     Dates: start: 20190805
  13. ADOPORT [Suspect]
     Active Substance: TACROLIMUS
     Indication: RENAL TRANSPLANT
     Dosage: 8 MG, UNKNOWN
     Route: 048
     Dates: start: 20190730, end: 20190802
  14. ADOPORT [Suspect]
     Active Substance: TACROLIMUS
     Dosage: 9 MG, UNKNOWN
     Route: 048
     Dates: start: 20200317, end: 20200407
  15. AZANTAC [Concomitant]
     Active Substance: RANITIDINE HYDROCHLORIDE
     Indication: PRODUCT USED FOR UNKNOWN INDICATION
     Dosage: UNK
     Route: 065
     Dates: start: 20190730
  16. ADOPORT [Suspect]
     Active Substance: TACROLIMUS
     Dosage: 10 MG, UNKNOWN
     Route: 048
     Dates: start: 20190807, end: 20190813
  17. ADOPORT [Suspect]
     Active Substance: TACROLIMUS
     Dosage: 10 MG, UNKNOWN
     Route: 048
     Dates: start: 20200113, end: 20200316
  18. ADOPORT [Suspect]
     Active Substance: TACROLIMUS
     Dosage: 8 MG, UNKNOWN
     Route: 048
     Dates: start: 20200407, end: 20200612

REACTIONS (9)
  - Tremor [Recovered/Resolved]
  - Diarrhoea [Not Recovered/Not Resolved]
  - Vaginal haemorrhage [Recovered/Resolved]
  - Alopecia [Recovered/Resolved]
  - Anaemia [Recovered/Resolved]
  - Ischaemia [Recovered/Resolved]
  - Hypotension [Recovered/Resolved]
  - Anaemia [Not Recovered/Not Resolved]
  - Cholestasis [Recovered/Resolved]

NARRATIVE: CASE EVENT DATE: 20190801
